FAERS Safety Report 4498150-7 (Version None)
Quarter: 2004Q4

REPORT INFORMATION
  Report Type: 
  Country: None (occurrence: None)
  Receive Date: 20041110
  Receipt Date: 20041104
  Transmission Date: 20050328
  Serious: Yes (Death)
  Sender: FDA-Public Use
  Company Number: US-MERCK-0411USA00844

PATIENT
  Sex: Female

DRUGS (2)
  1. MEVACOR [Suspect]
     Route: 048
     Dates: start: 19940101
  2. LOVASTATIN [Suspect]
     Route: 065

REACTIONS (2)
  - DRUG TOXICITY [None]
  - MUSCLE ATROPHY [None]
